FAERS Safety Report 18933333 (Version 5)
Quarter: 2022Q1

REPORT INFORMATION
  Report Type: Spontaneous
  Country: IT (occurrence: IT)
  Receive Date: 20210224
  Receipt Date: 20220312
  Transmission Date: 20220424
  Serious: Yes (Hospitalization, Other)
  Sender: FDA-Public Use
  Company Number: IT-AMGEN-ITASP2021028548

PATIENT

DRUGS (2)
  1. ADALIMUMAB [Suspect]
     Active Substance: ADALIMUMAB
     Indication: Colitis ulcerative
     Dosage: UNK
     Route: 065
  2. ADALIMUMAB [Suspect]
     Active Substance: ADALIMUMAB
     Indication: Crohn^s disease

REACTIONS (13)
  - Adverse event [Unknown]
  - Paradoxical psoriasis [Unknown]
  - Genital herpes [Unknown]
  - Anal abscess [Unknown]
  - Pneumonia [Unknown]
  - Oral herpes [Unknown]
  - Pyelonephritis acute [Unknown]
  - Fungal infection [Unknown]
  - Tooth abscess [Unknown]
  - Alopecia [Unknown]
  - Rash pruritic [Unknown]
  - Drug ineffective [Unknown]
  - Injection site reaction [Unknown]
